FAERS Safety Report 8110516-2 (Version None)
Quarter: 2012Q1

REPORT INFORMATION
  Report Type: 
  Country: None (occurrence: None)
  Receive Date: 20120202
  Receipt Date: 20110526
  Transmission Date: 20120608
  Serious: Yes (Death)
  Sender: FDA-Public Use
  Company Number: PHHY2008BR27785

PATIENT
  Sex: Male
  Weight: 50 kg

DRUGS (12)
  1. METFORMIN HCL [Concomitant]
     Indication: DIABETES MELLITUS
     Dosage: 2 DF, QD
     Route: 048
     Dates: start: 20060101
  2. RISPERIDONE [Concomitant]
     Indication: DEMENTIA ALZHEIMER'S TYPE
     Dosage: 2 DF, QD
     Route: 048
     Dates: start: 20080901
  3. EXELON [Suspect]
     Indication: DEMENTIA ALZHEIMER'S TYPE
     Dosage: 9MG/5CM2
     Route: 062
     Dates: start: 20081104
  4. CLONAZEPAM [Concomitant]
     Indication: DEPRESSION
  5. PHENYTOIN [Concomitant]
     Indication: DEPRESSION
  6. LEVOTHYROXINE SODIUM [Concomitant]
     Indication: HYPOTHYROIDISM
     Dosage: 1 TABLET DAILY IN FASTING CONDITION
     Route: 048
     Dates: start: 20060101
  7. PHENYTOIN [Concomitant]
     Indication: DEMENTIA ALZHEIMER'S TYPE
     Dosage: 100 MG, UNK
     Route: 048
     Dates: start: 19980101
  8. OMEPRAZOLE [Concomitant]
     Indication: GASTRIC DISORDER
     Dosage: 20MG 1 TABLET IN FASTING CONDITION
     Route: 048
     Dates: start: 20060101
  9. CLONAZEPAM [Concomitant]
     Indication: DEMENTIA ALZHEIMER'S TYPE
     Dosage: 1 DF, QD
     Route: 048
     Dates: start: 20080901
  10. FOLIC ACID [Concomitant]
     Indication: ANAEMIA
     Dosage: 2 DF, QD
     Route: 048
     Dates: start: 20080901
  11. EXELON [Suspect]
     Dosage: 18MG/10CM2
     Route: 062
     Dates: start: 20101211
  12. RISPERIDONE [Concomitant]
     Indication: DEPRESSION

REACTIONS (10)
  - DIARRHOEA [None]
  - WEIGHT DECREASED [None]
  - DEATH [None]
  - ABNORMAL FAECES [None]
  - HICCUPS [None]
  - APPLICATION SITE HYPERSENSITIVITY [None]
  - APPLICATION SITE IRRITATION [None]
  - ROTAVIRUS INFECTION [None]
  - AGITATION [None]
  - APPLICATION SITE RASH [None]
